FAERS Safety Report 8394116-5 (Version None)
Quarter: 2012Q2

REPORT INFORMATION
  Report Type: 
  Country: None (occurrence: None)
  Receive Date: 20120530
  Receipt Date: 20120521
  Transmission Date: 20120825
  Serious: Yes (Other)
  Sender: FDA-Public Use
  Company Number: BR-SANOFI-AVENTIS-2012SA036080

PATIENT
  Age: 75 Year
  Sex: Male
  Weight: 63 kg

DRUGS (6)
  1. TIMOLOL MALEATE [Concomitant]
     Dosage: OCULAR, 2 DROPS IN EACH EYE
     Route: 031
     Dates: start: 20050101
  2. DORZOLAMIDE HYDROCHLORIDE [Concomitant]
     Dosage: OCULAR, 2 DROPS IN EACH EYE
     Route: 031
     Dates: start: 20050101
  3. METFORMIN HCL [Concomitant]
     Route: 048
     Dates: start: 20020101
  4. AUTOPEN 24 [Suspect]
     Indication: DEVICE THERAPY
     Dates: start: 20080101
  5. LANTUS [Suspect]
     Route: 058
     Dates: start: 20080101
  6. LUMIGAN [Concomitant]
     Dosage: OCCULAR, IN EACH EYE
     Route: 031
     Dates: start: 20050101

REACTIONS (5)
  - DEAFNESS [None]
  - HYPERGLYCAEMIA [None]
  - PRESYNCOPE [None]
  - HYPOAESTHESIA [None]
  - HEADACHE [None]
